FAERS Safety Report 16575060 (Version 1)
Quarter: 2019Q3

REPORT INFORMATION
  Report Type: Spontaneous
  Country: US (occurrence: US)
  Receive Date: 20190715
  Receipt Date: 20190715
  Transmission Date: 20191004
  Serious: No
  Sender: FDA-Public Use
  Company Number: PHEH2019US028760

PATIENT
  Sex: Female

DRUGS (1)
  1. TACROLIMUS. [Suspect]
     Active Substance: TACROLIMUS
     Indication: PRODUCT USED FOR UNKNOWN INDICATION
     Dosage: 1 MG, BID
     Route: 065
     Dates: start: 20181210

REACTIONS (6)
  - Blood potassium increased [Unknown]
  - Nausea [Unknown]
  - Tremor [Unknown]
  - Diarrhoea [Unknown]
  - Palpitations [Unknown]
  - Blood glucose increased [Unknown]
